APPROVED DRUG PRODUCT: OXYBUTYNIN CHLORIDE
Active Ingredient: OXYBUTYNIN CHLORIDE
Strength: 5MG/5ML
Dosage Form/Route: SYRUP;ORAL
Application: A075039 | Product #001 | TE Code: AA
Applicant: CHARTWELL RX SCIENCES LLC
Approved: Jan 29, 1999 | RLD: No | RS: No | Type: RX